FAERS Safety Report 20141928 (Version 1)
Quarter: 2021Q4

REPORT INFORMATION
  Report Type: Spontaneous
  Country: US (occurrence: None)
  Receive Date: 20211202
  Receipt Date: 20211202
  Transmission Date: 20220303
  Serious: Yes (Life-Threatening, Disabling)
  Sender: FDA-Public Use
  Company Number: None

PATIENT
  Age: 64 Year
  Sex: Female
  Weight: 130.18 kg

DRUGS (3)
  1. TINACTIN [Suspect]
     Active Substance: TOLNAFTATE
     Indication: Tinea pedis
     Dosage: FREQUENCY : TWICE A DAY;??1 SPRAY (THIN COAT) ON FEET?
     Route: 061
     Dates: start: 20200129, end: 20200531
  2. TINACTIN [Suspect]
     Active Substance: TOLNAFTATE
     Indication: Antifungal treatment
  3. TASIGNA [Suspect]
     Active Substance: NILOTINIB

REACTIONS (5)
  - Platelet count increased [None]
  - Chronic myeloid leukaemia [None]
  - Recalled product administered [None]
  - Feeling abnormal [None]
  - Urticaria [None]

NARRATIVE: CASE EVENT DATE: 20200129
